FAERS Safety Report 11369172 (Version 3)
Quarter: 2015Q3

REPORT INFORMATION
  Report Type: Spontaneous
  Country: JP (occurrence: JP)
  Receive Date: 20150812
  Receipt Date: 20150921
  Transmission Date: 20151125
  Serious: Yes (Other)
  Sender: FDA-Public Use
  Company Number: JP-ELI_LILLY_AND_COMPANY-JP201507006954

PATIENT
  Age: 62 Year
  Sex: Male

DRUGS (7)
  1. GRANDAXIN [Concomitant]
     Active Substance: TOFISOPAM
     Indication: AUTONOMIC NERVOUS SYSTEM IMBALANCE
     Dosage: UNK
     Dates: start: 2013
  2. E FEN [Concomitant]
  3. BUSCOPAN [Concomitant]
     Active Substance: BUTYLSCOPOLAMINE BROMIDE
  4. MALFA [Concomitant]
  5. CYRAMZA [Suspect]
     Active Substance: RAMUCIRUMAB
     Indication: GASTRIC CANCER STAGE IV
     Dosage: 445 MG, UNK
     Route: 042
     Dates: start: 20150625
  6. POLARAMINE [Concomitant]
     Active Substance: DEXCHLORPHENIRAMINE MALEATE
  7. CERCINE [Concomitant]
     Active Substance: DIAZEPAM

REACTIONS (2)
  - Intestinal obstruction [Recovering/Resolving]
  - Douglas^ abscess [Unknown]

NARRATIVE: CASE EVENT DATE: 20150721
